FAERS Safety Report 7750131-3 (Version None)
Quarter: 2011Q3

REPORT INFORMATION
  Report Type: 
  Country: None (occurrence: None)
  Receive Date: 20110914
  Receipt Date: 20110906
  Transmission Date: 20111222
  Serious: Yes (Other)
  Sender: FDA-Public Use
  Company Number: US-B.I. PHARMACEUTICALS,INC./RIDGEFIELD-2011-BP-10897BP

PATIENT
  Sex: Male

DRUGS (18)
  1. VERSED [Concomitant]
     Indication: COLONOSCOPY
     Dates: start: 20110406, end: 20110406
  2. VERSED [Concomitant]
     Indication: ENDOSCOPY
  3. EXELON [Concomitant]
  4. MIRAPEX [Suspect]
     Dosage: 3 MG
     Route: 048
     Dates: start: 20100801
  5. FENTANYL [Concomitant]
     Indication: ENDOSCOPY
  6. ZOFRAN [Concomitant]
     Indication: ENDOSCOPY
  7. FINASTERIDE [Concomitant]
  8. PRILOSEC [Concomitant]
  9. HYDROMORPHONE HCL [Concomitant]
     Indication: COLONOSCOPY
     Dates: start: 20110406, end: 20110406
  10. HYDROMORPHONE HCL [Concomitant]
     Indication: ENDOSCOPY
  11. TAMSULOSIN HCL [Concomitant]
  12. VIT B [Concomitant]
  13. MIRAPEX [Suspect]
     Indication: PARKINSON'S DISEASE
     Dosage: 1 MG
     Route: 048
  14. FENTANYL [Concomitant]
     Indication: COLONOSCOPY
     Dates: start: 20110406, end: 20110406
  15. ZOFRAN [Concomitant]
     Indication: COLONOSCOPY
     Dates: start: 20110406, end: 20110406
  16. AGGRENOX [Concomitant]
     Route: 048
     Dates: start: 20020101
  17. BACLOFEN [Concomitant]
  18. VIT D [Concomitant]

REACTIONS (12)
  - DAYDREAMING [None]
  - CONVULSION [None]
  - RESTLESS LEGS SYNDROME [None]
  - CHILLS [None]
  - HALLUCINATION [None]
  - WEIGHT DECREASED [None]
  - MUSCLE TIGHTNESS [None]
  - CHOKING SENSATION [None]
  - MANIA [None]
  - INSOMNIA [None]
  - PARKINSON'S DISEASE [None]
  - CONFUSIONAL STATE [None]
